FAERS Safety Report 8140858-6 (Version None)
Quarter: 2012Q1

REPORT INFORMATION
  Report Type: 
  Country: None (occurrence: None)
  Receive Date: 20120216
  Receipt Date: 20120213
  Transmission Date: 20120608
  Serious: Yes (Other)
  Sender: FDA-Public Use
  Company Number: US-JNJFOC-20120207282

PATIENT
  Age: 23 Year
  Sex: Male

DRUGS (2)
  1. LEVAQUIN [Suspect]
     Route: 048
     Dates: start: 20030201
  2. LEVAQUIN [Suspect]
     Indication: BACTERIAL INFECTION
     Route: 048
     Dates: start: 20050101, end: 20090101

REACTIONS (1)
  - JOINT INJURY [None]
